FAERS Safety Report 6261667-9 (Version None)
Quarter: 2009Q3

REPORT INFORMATION
  Report Type: 
  Country: None (occurrence: None)
  Receive Date: 20090707
  Receipt Date: 20090707
  Transmission Date: 20100115
  Serious: Yes (Hospitalization)
  Sender: FDA-Public Use
  Company Number: None

PATIENT
  Age: 69 Year
  Sex: Male
  Weight: 88.4 kg

DRUGS (1)
  1. DIGOXIN [Suspect]
     Indication: ATRIAL FIBRILLATION
     Dosage: 0.25 MG EVERY DAY PO
     Route: 048
     Dates: start: 20040430, end: 20090608

REACTIONS (5)
  - BRADYCARDIA [None]
  - CARDIOACTIVE DRUG LEVEL INCREASED [None]
  - DIZZINESS [None]
  - MALAISE [None]
  - RENAL IMPAIRMENT [None]
